FAERS Safety Report 24448437 (Version 1)
Quarter: 2024Q4

REPORT INFORMATION
  Report Type: Spontaneous
  Country: CZ (occurrence: CZ)
  Receive Date: 20241017
  Receipt Date: 20241017
  Transmission Date: 20250115
  Serious: Yes (Other)
  Sender: ROCHE
  Company Number: CZ-ROCHE-10000103859

PATIENT
  Age: 49 Year
  Sex: Female

DRUGS (1)
  1. OCREVUS [Suspect]
     Active Substance: OCRELIZUMAB
     Indication: Relapsing-remitting multiple sclerosis
     Route: 042
     Dates: start: 202201

REACTIONS (11)
  - Multiple sclerosis [Unknown]
  - Musculoskeletal stiffness [Unknown]
  - Urinary tract infection [Unknown]
  - Oral herpes [Unknown]
  - Hemiparesis [Unknown]
  - Facial paresis [Unknown]
  - Cerebellar syndrome [Unknown]
  - Hypoaesthesia [Unknown]
  - Depression [Unknown]
  - Monoparesis [Unknown]
  - Paraesthesia [Unknown]

NARRATIVE: CASE EVENT DATE: 20220801
